FAERS Safety Report 25783024 (Version 2)
Quarter: 2025Q4

REPORT INFORMATION
  Report Type: Spontaneous
  Country: CO (occurrence: CO)
  Receive Date: 20250910
  Receipt Date: 20251006
  Transmission Date: 20260119
  Serious: Yes (Life-Threatening, Other)
  Sender: ABBVIE
  Company Number: CO-ABBVIE-6450316

PATIENT
  Age: 83 Year
  Sex: Female
  Weight: 60 kg

DRUGS (1)
  1. RINVOQ [Suspect]
     Active Substance: UPADACITINIB
     Indication: Rheumatoid arthritis
     Route: 048
     Dates: start: 20240725, end: 20250904

REACTIONS (1)
  - Acute myocardial infarction [Recovering/Resolving]

NARRATIVE: CASE EVENT DATE: 20250902
